FAERS Safety Report 9668137 (Version 1)
Quarter: 2013Q4

REPORT INFORMATION
  Report Type: Spontaneous
  Country: US (occurrence: None)
  Receive Date: 20131101
  Receipt Date: 20131101
  Transmission Date: 20140711
  Serious: Yes (Hospitalization)
  Sender: FDA-Public Use
  Company Number: IBUP20130014

PATIENT
  Age: 67 Year
  Sex: Male

DRUGS (7)
  1. IBUPROFEN [Suspect]
     Indication: GOUT
     Route: 048
  2. DIGOXIN [Suspect]
     Indication: PRODUCT USED FOR UNKNOWN INDICATION
  3. HYDROXYZINE HYDROCHLORIDE TABLETS (HYDROZINE HYDROCHLORIDE) (TABLETS) (HYSROCHLORTHIAZIDE) [Concomitant]
  4. ALLOPURINOL TABLETS (ALLOPURINOL) (UNKNOWN) (ALLOPURINOL) [Concomitant]
  5. ATENOLOL (ATENOLOL) UNKNOWN) (ATENOLOL) [Concomitant]
  6. TAMSULOSIN [Suspect]
  7. ASPIRIN (ACETYLSALICYLIC ACID) (UNKNOWN) (ACETYLSALICYLIC ACID) [Concomitant]

REACTIONS (15)
  - Toxicity to various agents [None]
  - Decreased appetite [None]
  - Nausea [None]
  - Vomiting [None]
  - Vision blurred [None]
  - Feeling abnormal [None]
  - Visual impairment [None]
  - Confusional state [None]
  - Depressed level of consciousness [None]
  - Gravitational oedema [None]
  - Blood potassium increased [None]
  - Renal failure chronic [None]
  - Blood sodium decreased [None]
  - Atrial fibrillation [None]
  - Toxicity to various agents [None]
